FAERS Safety Report 24687759 (Version 1)
Quarter: 2024Q4

REPORT INFORMATION
  Report Type: Spontaneous
  Country: US (occurrence: US)
  Receive Date: 20241202
  Receipt Date: 20241202
  Transmission Date: 20250115
  Serious: Yes (Death, Hospitalization, Other)
  Sender: BRISTOL-MYERS SQUIBB COMPANY
  Company Number: US-BRISTOL-MYERS SQUIBB COMPANY-2024-182931

PATIENT
  Age: 63 Year
  Sex: Female

DRUGS (1)
  1. POMALYST [Suspect]
     Active Substance: POMALIDOMIDE
     Indication: Plasma cell myeloma
     Route: 048
     Dates: start: 20240813, end: 20240912

REACTIONS (5)
  - Thrombocytopenia [Fatal]
  - Subarachnoid haemorrhage [Fatal]
  - Nausea [Unknown]
  - Vomiting [Unknown]
  - Septic shock [Unknown]

NARRATIVE: CASE EVENT DATE: 20240910
